FAERS Safety Report 7981719-2 (Version None)
Quarter: 2011Q4

REPORT INFORMATION
  Report Type: 
  Country: None (occurrence: None)
  Receive Date: 20111213
  Receipt Date: 20111128
  Transmission Date: 20120403
  Serious: Yes (Other)
  Sender: FDA-Public Use
  Company Number: 1000025891

PATIENT
  Age: 22 Year
  Sex: Female

DRUGS (2)
  1. MILNACIPRAN (MILNACIPRAN HYDROCHLORIDE) (TABLETS) [Suspect]
     Dosage: ORAL
     Route: 048
  2. FLUVOXAMINE MALEATE (FLUVOXAMINE MALEATE) (FLUVOXAMINE MALEATE) [Concomitant]

REACTIONS (2)
  - SUICIDAL IDEATION [None]
  - ACTIVATION SYNDROME [None]
